FAERS Safety Report 5901238-4 (Version None)
Quarter: 2008Q3

REPORT INFORMATION
  Report Type: 
  Country: None (occurrence: None)
  Receive Date: 20080929
  Receipt Date: 20080717
  Transmission Date: 20090109
  Serious: Yes (Life-Threatening, Other)
  Sender: FDA-Public Use
  Company Number: US-BRISTOL-MYERS SQUIBB COMPANY-14245393

PATIENT
  Age: 58 Year
  Sex: Female

DRUGS (6)
  1. ORENCIA [Suspect]
     Indication: RHEUMATOID ARTHRITIS
     Dosage: 1ST INFUSION
     Route: 042
     Dates: start: 20080626
  2. ADVAIR DISKUS 100/50 [Concomitant]
     Dosage: 1 DOSAGE FORM=250/50(UNITS NOT SPECIFIED)
  3. LESCOL [Concomitant]
     Dosage: 1 DOSAGE FORM=5/20
  4. LOPID [Concomitant]
     Dosage: 1 DOSAGE FORM=600(UNITS NOT SPECIFIED)
  5. ZETIA [Concomitant]
     Dosage: 1 DOSAGE FORM=10(UNITS NOT SPECIFIED)
  6. SYNTHROID [Concomitant]
     Dosage: 1 DOSAGE FORM=0.137(UNITS NOT SPECIFIED)

REACTIONS (1)
  - ANAPHYLACTIC REACTION [None]
